FAERS Safety Report 17601211 (Version 1)
Quarter: 2020Q1

REPORT INFORMATION
  Report Type: Report from Study
  Country: US (occurrence: US)
  Receive Date: 20200331
  Receipt Date: 20200331
  Transmission Date: 20200409
  Serious: No
  Sender: FDA-Public Use
  Company Number: NVSC2020US088113

PATIENT
  Sex: Female

DRUGS (1)
  1. PROMACTA [Suspect]
     Active Substance: ELTROMBOPAG OLAMINE
     Indication: PRODUCT USED FOR UNKNOWN INDICATION
     Dosage: (2 PILLS PER WEEK INSTEAD OF 2 PILLS PER DAY)
     Route: 065

REACTIONS (3)
  - Inappropriate schedule of product administration [Unknown]
  - Contusion [Unknown]
  - Fatigue [Unknown]
